FAERS Safety Report 6397479-5 (Version None)
Quarter: 2009Q4

REPORT INFORMATION
  Report Type: 
  Country: None (occurrence: None)
  Receive Date: 20091012
  Receipt Date: 20091002
  Transmission Date: 20100525
  Serious: Yes (Hospitalization)
  Sender: FDA-Public Use
  Company Number: JP-BRISTOL-MYERS SQUIBB COMPANY-14753487

PATIENT
  Age: 54 Year
  Sex: Male
  Weight: 62 kg

DRUGS (8)
  1. ABILIFY [Suspect]
     Indication: SCHIZOPHRENIA
     Dosage: 15MAY09-04JUN09:12MG QD (21 DAYS) 05JUN09-17JUN09:12MG BID (13 DAYS)(DOSE INCREASED)
     Route: 048
     Dates: start: 20090515, end: 20090617
  2. RISPERIDONE [Concomitant]
     Dosage: LIQUID ALSO TAKEN AS TABLETS  DOSE INCREASED TO 6 MG/D
     Dates: start: 20090605, end: 20090617
  3. OLANZAPINE [Concomitant]
     Dosage: TABLET
     Dates: end: 20090617
  4. BIPERIDEN HYDROCHLORIDE TAB [Concomitant]
     Dosage: TABS
     Dates: end: 20090617
  5. FLUVOXAMINE MALEATE [Concomitant]
     Dosage: TABLET
     Dates: end: 20090617
  6. TRIAZOLAM [Concomitant]
     Dosage: TABLET
     Dates: end: 20090617
  7. FLUNITRAZEPAM [Concomitant]
     Dosage: TABLET
     Dates: end: 20090617
  8. ETIZOLAM [Concomitant]
     Dosage: TABLET
     Dates: end: 20090617

REACTIONS (5)
  - ALTERED STATE OF CONSCIOUSNESS [None]
  - DISSOCIATIVE FUGUE [None]
  - HEAT ILLNESS [None]
  - RHABDOMYOLYSIS [None]
  - SHOCK [None]
